FAERS Safety Report 7851253 (Version 5)
Quarter: 2013Q2

REPORT INFORMATION
  Report Type: Spontaneous
  Country: US (occurrence: US)
  Receive Date: 20110310
  Receipt Date: 20130523
  Transmission Date: 20140414
  Serious: No
  Sender: FDA-Public Use
  Company Number: US-B.I. PHARMACEUTICALS,INC./RIDGEFIELD-2011-BP-05592BP

PATIENT
  Age: 66 Year
  Sex: Female

DRUGS (15)
  1. PRADAXA [Suspect]
     Indication: ATRIAL FIBRILLATION
     Dosage: 300 MG
     Route: 048
     Dates: start: 2010, end: 2011
  2. PRADAXA [Suspect]
     Dosage: 300 MG
     Route: 048
     Dates: start: 20120601
  3. AMIODARONE [Concomitant]
     Indication: ATRIAL FIBRILLATION
     Dosage: 100 MG
     Route: 048
  4. CHLORTHALIDONE [Concomitant]
     Indication: HYPERTENSION
     Dosage: 25 MG
     Route: 048
  5. AMLODIPINE/BENAZEPRIL [Concomitant]
     Indication: HYPERTENSION
     Route: 048
  6. SPIRONOLACTONE [Concomitant]
     Indication: HYPERTENSION
     Dosage: 25 MG
     Route: 048
  7. ATENOLOL [Concomitant]
     Indication: HYPERTENSION
     Dosage: 50 MG
     Route: 048
  8. ATENOLOL [Concomitant]
     Indication: ESSENTIAL TREMOR
  9. PRIMIDONE [Concomitant]
     Indication: ESSENTIAL TREMOR
     Route: 048
  10. DIAZEPAM [Concomitant]
     Indication: ESSENTIAL TREMOR
     Dosage: 5 MG
     Route: 048
  11. LEVOTHYROXINE [Concomitant]
     Indication: HYPOTHYROIDISM
     Dosage: 75 MCG
     Route: 048
  12. ARMOUR THYROID [Concomitant]
     Indication: HYPOTHYROIDISM
     Dosage: 30 MG
     Route: 048
  13. PRAVASTATIN [Concomitant]
     Indication: BLOOD CHOLESTEROL INCREASED
     Dosage: 40 MG
     Route: 048
  14. VITAMIN B [Concomitant]
     Indication: SUPPLEMENTATION THERAPY
     Route: 048
  15. VITAMIN B 12 [Concomitant]
     Indication: SUPPLEMENTATION THERAPY
     Route: 048

REACTIONS (11)
  - Feeling abnormal [Not Recovered/Not Resolved]
  - Balance disorder [Not Recovered/Not Resolved]
  - Dizziness [Not Recovered/Not Resolved]
  - Rash macular [Not Recovered/Not Resolved]
  - Contusion [Recovered/Resolved]
  - Influenza like illness [Not Recovered/Not Resolved]
  - Asthenia [Not Recovered/Not Resolved]
  - Head injury [Recovered/Resolved]
  - Heart valve incompetence [Not Recovered/Not Resolved]
  - Tricuspid valve incompetence [Not Recovered/Not Resolved]
  - Headache [Recovered/Resolved]
